FAERS Safety Report 7041279-X (Version None)
Quarter: 2010Q4

REPORT INFORMATION
  Report Type: 
  Country: None (occurrence: None)
  Receive Date: 20101013
  Receipt Date: 20101004
  Transmission Date: 20110411
  Serious: Yes (Hospitalization)
  Sender: FDA-Public Use
  Company Number: PHHY2010TR66079

PATIENT
  Age: 8 Year
  Sex: Female

DRUGS (2)
  1. OXCARBAZEPINE [Suspect]
     Indication: COMPLEX PARTIAL SEIZURES
     Dosage: 15 KG/MG DAILY
  2. OXCARBAZEPINE [Suspect]
     Dosage: 30 KG/MG DAILY

REACTIONS (5)
  - DYSKINESIA [None]
  - EYE MOVEMENT DISORDER [None]
  - MOVEMENT DISORDER [None]
  - TARDIVE DYSKINESIA [None]
  - TRISMUS [None]
